FAERS Safety Report 9525984 (Version 1)
Quarter: 2013Q3

REPORT INFORMATION
  Report Type: Spontaneous
  Country: US (occurrence: US)
  Receive Date: 20130916
  Receipt Date: 20130916
  Transmission Date: 20140515
  Serious: Yes (Other)
  Sender: FDA-Public Use
  Company Number: US-009507513-1309USA003854

PATIENT
  Age: 57 Year
  Sex: Male

DRUGS (2)
  1. PEGINTRON [Suspect]
     Indication: HEPATITIS C
     Dosage: 120 MICROGRAM, QW (120MCG/0.5ML)
     Route: 058
     Dates: start: 20130627
  2. REBETOL [Suspect]
     Dosage: UNK
     Route: 048

REACTIONS (1)
  - Haemoglobin decreased [Unknown]
